FAERS Safety Report 8852768 (Version 1)
Quarter: 2012Q4

REPORT INFORMATION
  Report Type: 
  Country: CN (occurrence: CN)
  Receive Date: 20121022
  Receipt Date: 20121022
  Transmission Date: 20130627
  Serious: Yes (Hospitalization)
  Sender: FDA-Public Use
  Company Number: CN-BAYER-2012-095199

PATIENT
  Age: 39 Year
  Sex: Male
  Weight: 85 kg

DRUGS (1)
  1. NEXAVAR [Suspect]
     Indication: HEPATIC NEOPLASM MALIGNANT
     Dosage: 200 mg, QD
     Route: 048
     Dates: start: 20120620, end: 20120810

REACTIONS (5)
  - Rash [Recovering/Resolving]
  - Anaphylactic shock [Recovering/Resolving]
  - Hepatic function abnormal [None]
  - Blood bilirubin increased [None]
  - Hospitalisation [None]
